FAERS Safety Report 6326364-X (Version None)
Quarter: 2009Q3

REPORT INFORMATION
  Report Type: 
  Country: None (occurrence: None)
  Receive Date: 20090821
  Receipt Date: 20090807
  Transmission Date: 20100115
  Serious: Yes (Death)
  Sender: FDA-Public Use
  Company Number: 20090381

PATIENT
  Age: 25 Year
  Sex: Male

DRUGS (4)
  1. PHENYLEPHRINE HCL INJECTION, USP (0299-25) 10 MG/ML [Suspect]
     Indication: CEREBRAL DISORDER
     Dosage: 0.04-7.6 UG/KG/MIN 299 HOURS, INTRAVENOUS DRIP
     Route: 041
  2. PROPOFOL [Suspect]
     Indication: INTRACRANIAL PRESSURE INCREASED
     Dosage: 30-134 UG/KG/MIN 135 HOURS
  3. PENTOBARBITAL CAP [Concomitant]
  4. THIOPENTAL SODIUM [Concomitant]

REACTIONS (8)
  - BLOOD CREATINE PHOSPHOKINASE INCREASED [None]
  - BLOOD CREATINE PHOSPHOKINASE MB INCREASED [None]
  - BLOOD LACTATE DEHYDROGENASE INCREASED [None]
  - ELECTROCARDIOGRAM T WAVE INVERSION [None]
  - INTRACRANIAL PRESSURE INCREASED [None]
  - METABOLIC ACIDOSIS [None]
  - MYOGLOBIN URINE PRESENT [None]
  - TROPONIN INCREASED [None]
